FAERS Safety Report 21381441 (Version 2)
Quarter: 2025Q2

REPORT INFORMATION
  Report Type: Other
  Country: GB (occurrence: GB)
  Receive Date: 20220927
  Receipt Date: 20250627
  Transmission Date: 20250716
  Serious: Yes (Other)
  Sender: LUPIN
  Company Number: GB-MHRA-ADR 27294541

PATIENT
  Age: 29 Year
  Sex: Male

DRUGS (224)
  1. SERTRALINE [Suspect]
     Active Substance: SERTRALINE HYDROCHLORIDE
     Indication: Product used for unknown indication
     Route: 065
  2. SERTRALINE [Suspect]
     Active Substance: SERTRALINE HYDROCHLORIDE
     Indication: Product used for unknown indication
  3. PREGABALIN [Suspect]
     Active Substance: PREGABALIN
     Indication: Product used for unknown indication
  4. PREGABALIN [Suspect]
     Active Substance: PREGABALIN
     Indication: Product used for unknown indication
  5. PREGABALIN [Suspect]
     Active Substance: PREGABALIN
     Route: 065
  6. PREGABALIN [Suspect]
     Active Substance: PREGABALIN
     Route: 065
  7. PREGABALIN [Suspect]
     Active Substance: PREGABALIN
     Route: 065
  8. PREGABALIN [Suspect]
     Active Substance: PREGABALIN
     Route: 065
  9. PREGABALIN [Suspect]
     Active Substance: PREGABALIN
     Route: 065
  10. PREGABALIN [Suspect]
     Active Substance: PREGABALIN
     Route: 065
  11. PREGABALIN [Suspect]
     Active Substance: PREGABALIN
     Route: 065
  12. PREGABALIN [Suspect]
     Active Substance: PREGABALIN
     Route: 065
  13. PREGABALIN [Suspect]
     Active Substance: PREGABALIN
  14. PREGABALIN [Suspect]
     Active Substance: PREGABALIN
  15. PREGABALIN [Suspect]
     Active Substance: PREGABALIN
  16. PREGABALIN [Suspect]
     Active Substance: PREGABALIN
  17. PREGABALIN [Suspect]
     Active Substance: PREGABALIN
  18. PREGABALIN [Suspect]
     Active Substance: PREGABALIN
  19. AMITRIPTYLINE HYDROCHLORIDE [Suspect]
     Active Substance: AMITRIPTYLINE HYDROCHLORIDE
     Indication: Product used for unknown indication
  20. AMITRIPTYLINE HYDROCHLORIDE [Suspect]
     Active Substance: AMITRIPTYLINE HYDROCHLORIDE
  21. AMITRIPTYLINE HYDROCHLORIDE [Suspect]
     Active Substance: AMITRIPTYLINE HYDROCHLORIDE
  22. AMITRIPTYLINE HYDROCHLORIDE [Suspect]
     Active Substance: AMITRIPTYLINE HYDROCHLORIDE
  23. AMITRIPTYLINE HYDROCHLORIDE [Suspect]
     Active Substance: AMITRIPTYLINE HYDROCHLORIDE
  24. AMITRIPTYLINE HYDROCHLORIDE [Suspect]
     Active Substance: AMITRIPTYLINE HYDROCHLORIDE
  25. AMITRIPTYLINE HYDROCHLORIDE [Suspect]
     Active Substance: AMITRIPTYLINE HYDROCHLORIDE
  26. AMITRIPTYLINE HYDROCHLORIDE [Suspect]
     Active Substance: AMITRIPTYLINE HYDROCHLORIDE
  27. BOTULINUM TOXIN TYPE A [Suspect]
     Active Substance: BOTULINUM TOXIN TYPE A
     Indication: Product used for unknown indication
     Dosage: 1 MG, QD
     Route: 065
     Dates: start: 2017, end: 2018
  28. BOTULINUM TOXIN TYPE A [Suspect]
     Active Substance: BOTULINUM TOXIN TYPE A
     Dosage: 1 MG, QD
     Route: 065
     Dates: start: 2018, end: 2018
  29. BOTULINUM TOXIN TYPE A [Suspect]
     Active Substance: BOTULINUM TOXIN TYPE A
     Dosage: 1 MG, QD, POWDER FOR SOLUTION FOR INJECTION
     Route: 065
     Dates: start: 2018, end: 2018
  30. BOTULINUM TOXIN TYPE A [Suspect]
     Active Substance: BOTULINUM TOXIN TYPE A
     Dosage: 1 MG, QD, POWDER FOR SOLUTION FOR INJECTION
     Route: 065
     Dates: start: 2018, end: 2018
  31. CYANOCOBALAMIN [Suspect]
     Active Substance: CYANOCOBALAMIN
     Indication: Product used for unknown indication
     Route: 065
  32. CYANOCOBALAMIN [Suspect]
     Active Substance: CYANOCOBALAMIN
     Indication: Product used for unknown indication
     Route: 065
  33. CYANOCOBALAMIN [Suspect]
     Active Substance: CYANOCOBALAMIN
     Route: 065
  34. CYANOCOBALAMIN [Suspect]
     Active Substance: CYANOCOBALAMIN
     Route: 065
  35. CYANOCOBALAMIN [Suspect]
     Active Substance: CYANOCOBALAMIN
     Route: 065
  36. CYANOCOBALAMIN [Suspect]
     Active Substance: CYANOCOBALAMIN
     Route: 065
  37. CYANOCOBALAMIN [Suspect]
     Active Substance: CYANOCOBALAMIN
     Route: 065
  38. CYANOCOBALAMIN [Suspect]
     Active Substance: CYANOCOBALAMIN
     Route: 065
  39. CYANOCOBALAMIN [Suspect]
     Active Substance: CYANOCOBALAMIN
     Route: 065
  40. CYANOCOBALAMIN [Suspect]
     Active Substance: CYANOCOBALAMIN
     Route: 065
  41. CYANOCOBALAMIN [Suspect]
     Active Substance: CYANOCOBALAMIN
     Route: 065
  42. CYANOCOBALAMIN [Suspect]
     Active Substance: CYANOCOBALAMIN
     Route: 065
  43. CYANOCOBALAMIN [Suspect]
     Active Substance: CYANOCOBALAMIN
  44. CYANOCOBALAMIN [Suspect]
     Active Substance: CYANOCOBALAMIN
  45. CYANOCOBALAMIN [Suspect]
     Active Substance: CYANOCOBALAMIN
  46. CYANOCOBALAMIN [Suspect]
     Active Substance: CYANOCOBALAMIN
  47. CYANOCOBALAMIN [Suspect]
     Active Substance: CYANOCOBALAMIN
  48. CYANOCOBALAMIN [Suspect]
     Active Substance: CYANOCOBALAMIN
  49. CYANOCOBALAMIN [Suspect]
     Active Substance: CYANOCOBALAMIN
  50. CYANOCOBALAMIN [Suspect]
     Active Substance: CYANOCOBALAMIN
  51. DICLOFENAC SODIUM [Suspect]
     Active Substance: DICLOFENAC SODIUM
     Indication: Product used for unknown indication
     Route: 065
  52. DICLOFENAC SODIUM [Suspect]
     Active Substance: DICLOFENAC SODIUM
     Indication: Product used for unknown indication
     Route: 065
  53. DICLOFENAC SODIUM [Suspect]
     Active Substance: DICLOFENAC SODIUM
  54. DICLOFENAC SODIUM [Suspect]
     Active Substance: DICLOFENAC SODIUM
  55. DOSULEPIN HYDROCHLORIDE [Suspect]
     Active Substance: DOTHIEPIN HYDROCHLORIDE
     Indication: Product used for unknown indication
  56. IBUPROFEN [Suspect]
     Active Substance: IBUPROFEN
     Indication: Product used for unknown indication
  57. IBUPROFEN [Suspect]
     Active Substance: IBUPROFEN
     Indication: Product used for unknown indication
  58. IBUPROFEN [Suspect]
     Active Substance: IBUPROFEN
     Indication: Product used for unknown indication
  59. IBUPROFEN [Suspect]
     Active Substance: IBUPROFEN
  60. TRAZODONE HYDROCHLORIDE [Suspect]
     Active Substance: TRAZODONE HYDROCHLORIDE
     Indication: Product used for unknown indication
  61. TRAZODONE HYDROCHLORIDE [Suspect]
     Active Substance: TRAZODONE HYDROCHLORIDE
     Indication: Product used for unknown indication
  62. TRAZODONE HYDROCHLORIDE [Suspect]
     Active Substance: TRAZODONE HYDROCHLORIDE
     Route: 065
  63. TRAZODONE HYDROCHLORIDE [Suspect]
     Active Substance: TRAZODONE HYDROCHLORIDE
     Route: 065
  64. TRAZODONE HYDROCHLORIDE [Suspect]
     Active Substance: TRAZODONE HYDROCHLORIDE
     Route: 065
  65. TRAZODONE HYDROCHLORIDE [Suspect]
     Active Substance: TRAZODONE HYDROCHLORIDE
     Route: 065
  66. TRAZODONE HYDROCHLORIDE [Suspect]
     Active Substance: TRAZODONE HYDROCHLORIDE
     Route: 065
  67. TRAZODONE HYDROCHLORIDE [Suspect]
     Active Substance: TRAZODONE HYDROCHLORIDE
     Route: 065
  68. TRAZODONE HYDROCHLORIDE [Suspect]
     Active Substance: TRAZODONE HYDROCHLORIDE
  69. TRAZODONE HYDROCHLORIDE [Suspect]
     Active Substance: TRAZODONE HYDROCHLORIDE
  70. TRAZODONE HYDROCHLORIDE [Suspect]
     Active Substance: TRAZODONE HYDROCHLORIDE
  71. TRAZODONE HYDROCHLORIDE [Suspect]
     Active Substance: TRAZODONE HYDROCHLORIDE
  72. TRAZODONE HYDROCHLORIDE [Suspect]
     Active Substance: TRAZODONE HYDROCHLORIDE
  73. TRAZODONE HYDROCHLORIDE [Suspect]
     Active Substance: TRAZODONE HYDROCHLORIDE
  74. TRAZODONE HYDROCHLORIDE [Suspect]
     Active Substance: TRAZODONE HYDROCHLORIDE
  75. PYRIDOXINE HYDROCHLORIDE [Suspect]
     Active Substance: PYRIDOXINE HYDROCHLORIDE
     Indication: Product used for unknown indication
     Route: 065
  76. PYRIDOXINE HYDROCHLORIDE [Suspect]
     Active Substance: PYRIDOXINE HYDROCHLORIDE
     Indication: Product used for unknown indication
     Route: 065
  77. PYRIDOXINE HYDROCHLORIDE [Suspect]
     Active Substance: PYRIDOXINE HYDROCHLORIDE
  78. PYRIDOXINE HYDROCHLORIDE [Suspect]
     Active Substance: PYRIDOXINE HYDROCHLORIDE
  79. PYRIDOXINE HYDROCHLORIDE [Suspect]
     Active Substance: PYRIDOXINE HYDROCHLORIDE
  80. PYRIDOXINE HYDROCHLORIDE [Suspect]
     Active Substance: PYRIDOXINE HYDROCHLORIDE
  81. PYRIDOXINE HYDROCHLORIDE [Suspect]
     Active Substance: PYRIDOXINE HYDROCHLORIDE
  82. PYRIDOXINE HYDROCHLORIDE [Suspect]
     Active Substance: PYRIDOXINE HYDROCHLORIDE
  83. PYRIDOXINE HYDROCHLORIDE [Suspect]
     Active Substance: PYRIDOXINE HYDROCHLORIDE
  84. PYRIDOXINE HYDROCHLORIDE [Suspect]
     Active Substance: PYRIDOXINE HYDROCHLORIDE
  85. PYRIDOXINE HYDROCHLORIDE [Suspect]
     Active Substance: PYRIDOXINE HYDROCHLORIDE
  86. PYRIDOXINE HYDROCHLORIDE [Suspect]
     Active Substance: PYRIDOXINE HYDROCHLORIDE
  87. THIAMINE HYDROCHLORIDE [Suspect]
     Active Substance: THIAMINE HYDROCHLORIDE
     Indication: Product used for unknown indication
     Route: 065
  88. THIAMINE HYDROCHLORIDE [Suspect]
     Active Substance: THIAMINE HYDROCHLORIDE
     Indication: Product used for unknown indication
     Route: 065
  89. THIAMINE HYDROCHLORIDE [Suspect]
     Active Substance: THIAMINE HYDROCHLORIDE
  90. THIAMINE HYDROCHLORIDE [Suspect]
     Active Substance: THIAMINE HYDROCHLORIDE
  91. THIAMINE HYDROCHLORIDE [Suspect]
     Active Substance: THIAMINE HYDROCHLORIDE
  92. THIAMINE HYDROCHLORIDE [Suspect]
     Active Substance: THIAMINE HYDROCHLORIDE
  93. THIAMINE HYDROCHLORIDE [Suspect]
     Active Substance: THIAMINE HYDROCHLORIDE
  94. THIAMINE HYDROCHLORIDE [Suspect]
     Active Substance: THIAMINE HYDROCHLORIDE
  95. THIAMINE HYDROCHLORIDE [Suspect]
     Active Substance: THIAMINE HYDROCHLORIDE
  96. THIAMINE HYDROCHLORIDE [Suspect]
     Active Substance: THIAMINE HYDROCHLORIDE
  97. THIAMINE HYDROCHLORIDE [Suspect]
     Active Substance: THIAMINE HYDROCHLORIDE
  98. THIAMINE HYDROCHLORIDE [Suspect]
     Active Substance: THIAMINE HYDROCHLORIDE
  99. THIAMINE HYDROCHLORIDE [Suspect]
     Active Substance: THIAMINE HYDROCHLORIDE
  100. ACETAMINOPHEN [Suspect]
     Active Substance: ACETAMINOPHEN
     Indication: Product used for unknown indication
  101. ACETAMINOPHEN [Suspect]
     Active Substance: ACETAMINOPHEN
     Indication: Product used for unknown indication
     Route: 065
  102. ACETAMINOPHEN [Suspect]
     Active Substance: ACETAMINOPHEN
     Indication: Product used for unknown indication
     Route: 065
  103. ACETAMINOPHEN [Suspect]
     Active Substance: ACETAMINOPHEN
     Route: 065
  104. ACETAMINOPHEN [Suspect]
     Active Substance: ACETAMINOPHEN
     Route: 065
  105. ACETAMINOPHEN [Suspect]
     Active Substance: ACETAMINOPHEN
     Route: 065
  106. ACETAMINOPHEN [Suspect]
     Active Substance: ACETAMINOPHEN
     Route: 065
  107. ACETAMINOPHEN [Suspect]
     Active Substance: ACETAMINOPHEN
     Route: 065
  108. ACETAMINOPHEN [Suspect]
     Active Substance: ACETAMINOPHEN
     Route: 065
  109. ACETAMINOPHEN [Suspect]
     Active Substance: ACETAMINOPHEN
     Route: 065
  110. ACETAMINOPHEN [Suspect]
     Active Substance: ACETAMINOPHEN
     Route: 065
  111. ACETAMINOPHEN [Suspect]
     Active Substance: ACETAMINOPHEN
     Route: 065
  112. ACETAMINOPHEN [Suspect]
     Active Substance: ACETAMINOPHEN
     Route: 065
  113. ACETAMINOPHEN [Suspect]
     Active Substance: ACETAMINOPHEN
     Route: 065
  114. ACETAMINOPHEN [Suspect]
     Active Substance: ACETAMINOPHEN
     Route: 065
  115. ACETAMINOPHEN [Suspect]
     Active Substance: ACETAMINOPHEN
     Route: 065
  116. ACETAMINOPHEN [Suspect]
     Active Substance: ACETAMINOPHEN
  117. ACETAMINOPHEN [Suspect]
     Active Substance: ACETAMINOPHEN
  118. ACETAMINOPHEN [Suspect]
     Active Substance: ACETAMINOPHEN
  119. ACETAMINOPHEN [Suspect]
     Active Substance: ACETAMINOPHEN
  120. ACETAMINOPHEN [Suspect]
     Active Substance: ACETAMINOPHEN
  121. ACETAMINOPHEN [Suspect]
     Active Substance: ACETAMINOPHEN
  122. ACETAMINOPHEN [Suspect]
     Active Substance: ACETAMINOPHEN
  123. ACETAMINOPHEN [Suspect]
     Active Substance: ACETAMINOPHEN
  124. ACETAMINOPHEN [Suspect]
     Active Substance: ACETAMINOPHEN
  125. ACETAMINOPHEN [Suspect]
     Active Substance: ACETAMINOPHEN
  126. ACETAMINOPHEN [Suspect]
     Active Substance: ACETAMINOPHEN
  127. ACETAMINOPHEN [Suspect]
     Active Substance: ACETAMINOPHEN
  128. ACETAMINOPHEN [Suspect]
     Active Substance: ACETAMINOPHEN
  129. ACETAMINOPHEN [Suspect]
     Active Substance: ACETAMINOPHEN
  130. ACETAMINOPHEN [Suspect]
     Active Substance: ACETAMINOPHEN
  131. ACETAMINOPHEN [Suspect]
     Active Substance: ACETAMINOPHEN
  132. ACETAMINOPHEN [Suspect]
     Active Substance: ACETAMINOPHEN
  133. PROTHIADEN [Suspect]
     Active Substance: DOTHIEPIN HYDROCHLORIDE
     Indication: Product used for unknown indication
  134. PROTHIADEN [Suspect]
     Active Substance: DOTHIEPIN HYDROCHLORIDE
     Indication: Product used for unknown indication
  135. PROTHIADEN [Suspect]
     Active Substance: DOTHIEPIN HYDROCHLORIDE
     Indication: Product used for unknown indication
  136. PROTHIADEN [Suspect]
     Active Substance: DOTHIEPIN HYDROCHLORIDE
  137. PROTHIADEN [Suspect]
     Active Substance: DOTHIEPIN HYDROCHLORIDE
  138. PROTHIADEN [Suspect]
     Active Substance: DOTHIEPIN HYDROCHLORIDE
     Route: 065
  139. PROTHIADEN [Suspect]
     Active Substance: DOTHIEPIN HYDROCHLORIDE
     Route: 065
  140. PROTHIADEN [Suspect]
     Active Substance: DOTHIEPIN HYDROCHLORIDE
     Route: 065
  141. PROTHIADEN [Suspect]
     Active Substance: DOTHIEPIN HYDROCHLORIDE
     Route: 065
  142. PROTHIADEN [Suspect]
     Active Substance: DOTHIEPIN HYDROCHLORIDE
     Route: 065
  143. PROTHIADEN [Suspect]
     Active Substance: DOTHIEPIN HYDROCHLORIDE
  144. PROTHIADEN [Suspect]
     Active Substance: DOTHIEPIN HYDROCHLORIDE
  145. PROTHIADEN [Suspect]
     Active Substance: DOTHIEPIN HYDROCHLORIDE
  146. PROTHIADEN [Suspect]
     Active Substance: DOTHIEPIN HYDROCHLORIDE
  147. PROTHIADEN [Suspect]
     Active Substance: DOTHIEPIN HYDROCHLORIDE
  148. PROTHIADEN [Suspect]
     Active Substance: DOTHIEPIN HYDROCHLORIDE
  149. PROTHIADEN [Suspect]
     Active Substance: DOTHIEPIN HYDROCHLORIDE
  150. PROTHIADEN [Suspect]
     Active Substance: DOTHIEPIN HYDROCHLORIDE
  151. PROTHIADEN [Suspect]
     Active Substance: DOTHIEPIN HYDROCHLORIDE
  152. PROTHIADEN [Suspect]
     Active Substance: DOTHIEPIN HYDROCHLORIDE
  153. PROTHIADEN [Suspect]
     Active Substance: DOTHIEPIN HYDROCHLORIDE
  154. TOPIRAMATE [Suspect]
     Active Substance: TOPIRAMATE
     Indication: Product used for unknown indication
  155. TOPIRAMATE [Suspect]
     Active Substance: TOPIRAMATE
     Indication: Product used for unknown indication
     Route: 065
  156. TOPIRAMATE [Suspect]
     Active Substance: TOPIRAMATE
     Route: 065
  157. TOPIRAMATE [Suspect]
     Active Substance: TOPIRAMATE
     Route: 065
  158. TOPIRAMATE [Suspect]
     Active Substance: TOPIRAMATE
     Route: 065
  159. TOPIRAMATE [Suspect]
     Active Substance: TOPIRAMATE
     Route: 065
  160. TOPIRAMATE [Suspect]
     Active Substance: TOPIRAMATE
     Route: 065
  161. TOPIRAMATE [Suspect]
     Active Substance: TOPIRAMATE
     Route: 065
  162. TOPIRAMATE [Suspect]
     Active Substance: TOPIRAMATE
     Route: 065
  163. TOPIRAMATE [Suspect]
     Active Substance: TOPIRAMATE
     Route: 065
  164. TOPIRAMATE [Suspect]
     Active Substance: TOPIRAMATE
     Route: 065
  165. TOPIRAMATE [Suspect]
     Active Substance: TOPIRAMATE
     Route: 065
  166. TOPIRAMATE [Suspect]
     Active Substance: TOPIRAMATE
     Route: 065
  167. TOPIRAMATE [Suspect]
     Active Substance: TOPIRAMATE
  168. TOPIRAMATE [Suspect]
     Active Substance: TOPIRAMATE
  169. TOPIRAMATE [Suspect]
     Active Substance: TOPIRAMATE
  170. TOPIRAMATE [Suspect]
     Active Substance: TOPIRAMATE
  171. TOPIRAMATE [Suspect]
     Active Substance: TOPIRAMATE
  172. TOPIRAMATE [Suspect]
     Active Substance: TOPIRAMATE
  173. TOPIRAMATE [Suspect]
     Active Substance: TOPIRAMATE
  174. TOPIRAMATE [Suspect]
     Active Substance: TOPIRAMATE
  175. TOPIRAMATE [Suspect]
     Active Substance: TOPIRAMATE
  176. TOPIRAMATE [Suspect]
     Active Substance: TOPIRAMATE
  177. TOPIRAMATE [Suspect]
     Active Substance: TOPIRAMATE
  178. TOPIRAMATE [Suspect]
     Active Substance: TOPIRAMATE
  179. TOPIRAMATE [Suspect]
     Active Substance: TOPIRAMATE
  180. TRAZODONE HYDROCHLORIDE [Suspect]
     Active Substance: TRAZODONE HYDROCHLORIDE
     Indication: Product used for unknown indication
     Route: 065
  181. TRAZODONE HYDROCHLORIDE [Suspect]
     Active Substance: TRAZODONE HYDROCHLORIDE
     Indication: Product used for unknown indication
  182. TRAZODONE HYDROCHLORIDE [Suspect]
     Active Substance: TRAZODONE HYDROCHLORIDE
     Indication: Product used for unknown indication
  183. TRAZODONE HYDROCHLORIDE [Suspect]
     Active Substance: TRAZODONE HYDROCHLORIDE
  184. TRAZODONE HYDROCHLORIDE [Suspect]
     Active Substance: TRAZODONE HYDROCHLORIDE
     Route: 065
  185. TRAZODONE HYDROCHLORIDE [Suspect]
     Active Substance: TRAZODONE HYDROCHLORIDE
     Route: 065
  186. TRAZODONE HYDROCHLORIDE [Suspect]
     Active Substance: TRAZODONE HYDROCHLORIDE
     Route: 065
  187. TRAZODONE HYDROCHLORIDE [Suspect]
     Active Substance: TRAZODONE HYDROCHLORIDE
     Route: 065
  188. TRAZODONE HYDROCHLORIDE [Suspect]
     Active Substance: TRAZODONE HYDROCHLORIDE
     Route: 065
  189. TRAZODONE HYDROCHLORIDE [Suspect]
     Active Substance: TRAZODONE HYDROCHLORIDE
     Route: 065
  190. TRAZODONE HYDROCHLORIDE [Suspect]
     Active Substance: TRAZODONE HYDROCHLORIDE
  191. TRAZODONE HYDROCHLORIDE [Suspect]
     Active Substance: TRAZODONE HYDROCHLORIDE
  192. TRAZODONE HYDROCHLORIDE [Suspect]
     Active Substance: TRAZODONE HYDROCHLORIDE
  193. TRAZODONE HYDROCHLORIDE [Suspect]
     Active Substance: TRAZODONE HYDROCHLORIDE
  194. TRAZODONE HYDROCHLORIDE [Suspect]
     Active Substance: TRAZODONE HYDROCHLORIDE
  195. TRAZODONE HYDROCHLORIDE [Suspect]
     Active Substance: TRAZODONE HYDROCHLORIDE
  196. TRAZODONE HYDROCHLORIDE [Suspect]
     Active Substance: TRAZODONE HYDROCHLORIDE
  197. TRAZODONE HYDROCHLORIDE [Suspect]
     Active Substance: TRAZODONE HYDROCHLORIDE
  198. TRAZODONE HYDROCHLORIDE [Suspect]
     Active Substance: TRAZODONE HYDROCHLORIDE
  199. VALPROATE SODIUM [Suspect]
     Active Substance: VALPROATE SODIUM
     Indication: Product used for unknown indication
  200. VALPROATE SODIUM [Suspect]
     Active Substance: VALPROATE SODIUM
     Indication: Product used for unknown indication
  201. VALPROIC ACID [Suspect]
     Active Substance: VALPROIC ACID
     Indication: Product used for unknown indication
     Route: 065
  202. VALPROIC ACID [Suspect]
     Active Substance: VALPROIC ACID
  203. VALPROIC ACID [Suspect]
     Active Substance: VALPROIC ACID
     Route: 065
  204. VALPROIC ACID [Suspect]
     Active Substance: VALPROIC ACID
     Route: 065
  205. VALPROIC ACID [Suspect]
     Active Substance: VALPROIC ACID
     Route: 065
  206. VALPROIC ACID [Suspect]
     Active Substance: VALPROIC ACID
  207. VALPROIC ACID [Suspect]
     Active Substance: VALPROIC ACID
  208. VALPROIC ACID [Suspect]
     Active Substance: VALPROIC ACID
  209. VALPROATE MAGNESIUM [Suspect]
     Active Substance: VALPROATE MAGNESIUM
     Indication: Product used for unknown indication
     Route: 065
  210. VALPROATE MAGNESIUM [Suspect]
     Active Substance: VALPROATE MAGNESIUM
     Route: 065
  211. VALPROATE MAGNESIUM [Suspect]
     Active Substance: VALPROATE MAGNESIUM
     Route: 065
  212. TOPAMAX [Suspect]
     Active Substance: TOPIRAMATE
     Indication: Product used for unknown indication
     Route: 065
  213. TOPAMAX [Suspect]
     Active Substance: TOPIRAMATE
  214. PYRIDOXINE HYDROCHLORIDE\THIAMINE HYDROCHLORIDE [Suspect]
     Active Substance: PYRIDOXINE HYDROCHLORIDE\THIAMINE HYDROCHLORIDE
     Indication: Product used for unknown indication
     Route: 065
  215. VITAMIN B [Suspect]
     Active Substance: VITAMIN B
     Indication: Product used for unknown indication
     Route: 065
  216. BOTOX [Suspect]
     Active Substance: ONABOTULINUMTOXINA
     Indication: Product used for unknown indication
     Dates: start: 2017, end: 2017
  217. BOTOX [Suspect]
     Active Substance: ONABOTULINUMTOXINA
     Indication: Product used for unknown indication
     Dates: start: 2017, end: 2018
  218. BOTOX [Suspect]
     Active Substance: ONABOTULINUMTOXINA
  219. BOTOX [Suspect]
     Active Substance: ONABOTULINUMTOXINA
     Dosage: 1 MG, QD
     Dates: start: 2018, end: 2018
  220. BOTOX [Suspect]
     Active Substance: ONABOTULINUMTOXINA
  221. BOTOX [Suspect]
     Active Substance: ONABOTULINUMTOXINA
     Dates: start: 2017, end: 2018
  222. BOTOX [Suspect]
     Active Substance: ONABOTULINUMTOXINA
  223. DOTHIEPIN HYDROCHLORIDE [Suspect]
     Active Substance: DOTHIEPIN HYDROCHLORIDE
     Indication: Product used for unknown indication
     Route: 065
  224. DOTHIEPIN HYDROCHLORIDE [Suspect]
     Active Substance: DOTHIEPIN HYDROCHLORIDE

REACTIONS (6)
  - Migraine [Unknown]
  - Neck pain [Unknown]
  - Head discomfort [Unknown]
  - Back pain [Unknown]
  - Pain [Unknown]
  - Headache [Unknown]
